FAERS Safety Report 9068775 (Version 1)
Quarter: 2013Q1

REPORT INFORMATION
  Report Type: Spontaneous
  Country: US (occurrence: None)
  Receive Date: 20130212
  Receipt Date: 20130212
  Transmission Date: 20140127
  Serious: Yes (Life-Threatening, Hospitalization, Other)
  Sender: FDA-Public Use
  Company Number: None

PATIENT
  Age: 66 Year
  Sex: Male
  Weight: 129 kg

DRUGS (1)
  1. XARELTO [Suspect]
     Indication: ATRIAL FIBRILLATION
     Dosage: 20MG DAILY BY MOUTH
     Route: 048
     Dates: start: 20130201, end: 20130206

REACTIONS (4)
  - Haemoptysis [None]
  - Cough [None]
  - Asthenia [None]
  - Haemorrhage [None]
